FAERS Safety Report 11367690 (Version 1)
Quarter: 2015Q3

REPORT INFORMATION
  Report Type: Spontaneous
  Country: US (occurrence: US)
  Receive Date: 20150811
  Receipt Date: 20150811
  Transmission Date: 20151125
  Serious: No
  Sender: FDA-Public Use
  Company Number: US-ELI_LILLY_AND_COMPANY-US201206003032

PATIENT
  Sex: Male

DRUGS (1)
  1. AXIRON [Suspect]
     Active Substance: TESTOSTERONE
     Indication: BLOOD TESTOSTERONE DECREASED
     Dosage: 60 MG, QD

REACTIONS (9)
  - Asthenia [Unknown]
  - Dizziness [Unknown]
  - Feeling abnormal [Unknown]
  - Fatigue [Unknown]
  - Blood testosterone decreased [Unknown]
  - Nausea [Unknown]
  - Night sweats [Unknown]
  - Influenza like illness [Unknown]
  - Chills [Unknown]
